FAERS Safety Report 5007824-0 (Version None)
Quarter: 2006Q2

REPORT INFORMATION
  Report Type: 
  Country: None (occurrence: None)
  Receive Date: 20060522
  Receipt Date: 20060515
  Transmission Date: 20061013
  Serious: Yes (Other)
  Sender: FDA-Public Use
  Company Number: US-AVENTIS-200614406US

PATIENT
  Sex: Female

DRUGS (4)
  1. PENLAC [Suspect]
     Indication: ONYCHOMYCOSIS
     Dosage: DOSE: UNK
     Route: 061
     Dates: start: 20060504, end: 20060514
  2. DEPAKOTE [Concomitant]
     Dosage: DOSE: UNK
     Dates: start: 20010101
  3. SYNTHROID [Concomitant]
     Indication: HYPOTHYROIDISM
     Dosage: DOSE: UNK
  4. PREMPRO [Concomitant]
     Indication: MENOPAUSE
     Dosage: DOSE: UNK

REACTIONS (1)
  - PETIT MAL EPILEPSY [None]
